FAERS Safety Report 10641243 (Version 2)
Quarter: 2015Q2

REPORT INFORMATION
  Report Type: Report from Study
  Country: FR (occurrence: FR)
  Receive Date: 20141209
  Receipt Date: 20150420
  Transmission Date: 20150821
  Serious: Yes (Hospitalization)
  Sender: FDA-Public Use
  Company Number: FR-PFIZER INC-2014331753

PATIENT
  Age: 9 Year
  Sex: Male

DRUGS (6)
  1. EXJADE [Suspect]
     Active Substance: DEFERASIROX
     Indication: IRON OVERLOAD
  2. VANCOMYCIN HCL [Suspect]
     Active Substance: VANCOMYCIN HYDROCHLORIDE
  3. ATGAM [Suspect]
     Active Substance: EQUINE THYMOCYTE IMMUNE GLOBULIN
     Indication: APLASTIC ANAEMIA
     Dosage: 40 MG/KG, DAILY
     Route: 042
     Dates: start: 20130530, end: 20130602
  4. ZOVIRAX [Suspect]
     Active Substance: ACYCLOVIR
  5. ALDACTONE [Suspect]
     Active Substance: SPIRONOLACTONE
  6. CICLOSPORIN [Suspect]
     Active Substance: CYCLOSPORINE
     Indication: APLASTIC ANAEMIA

REACTIONS (3)
  - Acute kidney injury [Recovered/Resolved]
  - Sepsis [Unknown]
  - Treatment failure [Unknown]

NARRATIVE: CASE EVENT DATE: 20131226
